FAERS Safety Report 7874956-9 (Version None)
Quarter: 2011Q4

REPORT INFORMATION
  Report Type: 
  Country: None (occurrence: None)
  Receive Date: 20111031
  Receipt Date: 20111024
  Transmission Date: 20120403
  Serious: Yes (Life-Threatening)
  Sender: FDA-Public Use
  Company Number: FR-JNJFOC-20111011149

PATIENT
  Sex: Male
  Weight: 90 kg

DRUGS (2)
  1. DURAGESIC-100 [Suspect]
     Indication: PAIN
     Route: 062
     Dates: start: 20111001
  2. DURAGESIC-100 [Suspect]
     Route: 062

REACTIONS (3)
  - COMA [None]
  - MALAISE [None]
  - RESPIRATORY DEPRESSION [None]
